FAERS Safety Report 18750795 (Version 3)
Quarter: 2021Q1

REPORT INFORMATION
  Report Type: Report from Study
  Country: US (occurrence: US)
  Receive Date: 20210118
  Receipt Date: 20210303
  Transmission Date: 20210419
  Serious: Yes (Hospitalization, Disabling)
  Sender: FDA-Public Use
  Company Number: US-TAKEDA-2021TUS001707

PATIENT
  Age: 77 Year
  Sex: Female
  Weight: 62 kg

DRUGS (8)
  1. HUMAN IMMUNOGLOBULIN; HYALURONIDASE [Suspect]
     Active Substance: HUMAN IMMUNOGLOBULIN G\HYALURONIDASE RECOMBINANT HUMAN
     Dosage: 200 MILLILITER, Q4WEEKS
     Route: 065
     Dates: start: 20190515, end: 20190515
  2. NASACORT [Concomitant]
     Active Substance: TRIAMCINOLONE ACETONIDE
     Indication: RHINITIS ALLERGIC
     Dosage: 55 MICROGRAM, AS NEEDED
     Route: 045
     Dates: start: 2016
  3. HUMAN IMMUNOGLOBULIN; HYALURONIDASE [Suspect]
     Active Substance: HUMAN IMMUNOGLOBULIN G\HYALURONIDASE RECOMBINANT HUMAN
     Indication: IMMUNODEFICIENCY COMMON VARIABLE
     Dosage: 200 MILLILITER, Q4WEEKS
     Route: 065
     Dates: start: 20180418, end: 20180418
  4. ZYRTEC [Concomitant]
     Active Substance: CETIRIZINE HYDROCHLORIDE
     Indication: RHINITIS ALLERGIC
     Dosage: 10 TABLET UNK, AS NEEDED
     Route: 048
     Dates: start: 2012
  5. MIDODRINE [Concomitant]
     Active Substance: MIDODRINE
     Indication: HYPOTENSION
     Dosage: 3.75 GRAM, QD
     Route: 048
     Dates: start: 2013
  6. SINGULAIR [Concomitant]
     Active Substance: MONTELUKAST SODIUM
     Indication: ASTHMA
     Dosage: 10 TABLET UNK, AS NEEDED
     Route: 048
     Dates: start: 2010
  7. PROLIA [Concomitant]
     Active Substance: DENOSUMAB
     Indication: OSTEOPOROSIS
     Dosage: 60 MILLIGRAM PER MILLILITRE, AS NEEDED
     Route: 058
     Dates: start: 2012
  8. ADVAIR HFA [Concomitant]
     Active Substance: FLUTICASONE PROPIONATE\SALMETEROL XINAFOATE
     Indication: ASTHMA
     Dosage: 50050 MICROGRAM, BID
     Route: 055
     Dates: start: 20170901

REACTIONS (1)
  - Thoracic vertebral fracture [Recovering/Resolving]

NARRATIVE: CASE EVENT DATE: 201902
